FAERS Safety Report 18633587 (Version 1)
Quarter: 2020Q4

REPORT INFORMATION
  Report Type: Spontaneous
  Country: JP (occurrence: JP)
  Receive Date: 20201218
  Receipt Date: 20201218
  Transmission Date: 20210114
  Serious: Yes (Other)
  Sender: FDA-Public Use
  Company Number: JP-PFIZER INC-2020495624

PATIENT
  Age: 77 Year
  Sex: Male

DRUGS (2)
  1. CORTRIL [Suspect]
     Active Substance: HYDROCORTISONE
     Indication: ADRENAL INSUFFICIENCY
     Dosage: 1 DF, DAILY
     Route: 048
     Dates: start: 201912, end: 202003
  2. CORTRIL [Suspect]
     Active Substance: HYDROCORTISONE
     Dosage: UNK, ALTERNATE DAY (HALF TABLET )
     Route: 048

REACTIONS (7)
  - Asthenia [Unknown]
  - Pruritus [Unknown]
  - Intentional product use issue [Unknown]
  - Glaucoma [Unknown]
  - Cataract [Unknown]
  - Diabetes mellitus [Unknown]
  - Product use complaint [Unknown]
